FAERS Safety Report 6929092-2 (Version None)
Quarter: 2010Q3

REPORT INFORMATION
  Report Type: 
  Country: None (occurrence: None)
  Receive Date: 20100811
  Receipt Date: 20100802
  Transmission Date: 20110219
  Serious: Yes (Hospitalization)
  Sender: FDA-Public Use
  Company Number: URSO-2010-092

PATIENT
  Age: 56 Year
  Sex: Female

DRUGS (8)
  1. URSODIOL [Suspect]
     Indication: AUTOIMMUNE HEPATITIS
     Dosage: 600MG ORAL
     Route: 048
     Dates: start: 19900101
  2. ALPROSTADIL [Suspect]
     Indication: ARTHRALGIA
     Dosage: INTRAVENOUS DRIP
     Route: 041
     Dates: start: 20100501, end: 20100709
  3. GABAPENTIN [Suspect]
     Indication: ARTHRALGIA
     Dosage: 600 MG ORAL
     Route: 048
     Dates: start: 20100501, end: 20100709
  4. CELECOXIB [Suspect]
     Indication: ARTHRALGIA
     Dosage: 400 MG ORAL
     Route: 048
     Dates: start: 20100501, end: 20100709
  5. LANSOPRAZOLE [Suspect]
     Indication: PROPHYLAXIS
     Dosage: 15 MG ORAL
     Route: 048
     Dates: start: 20100501, end: 20100709
  6. LIPITOR [Concomitant]
  7. LOSARTAN POTASSIUM [Concomitant]
  8. DIAZEPAM [Concomitant]

REACTIONS (1)
  - SYSTEMIC LUPUS ERYTHEMATOSUS [None]
